FAERS Safety Report 6290403-5 (Version None)
Quarter: 2009Q3

REPORT INFORMATION
  Report Type: 
  Country: None (occurrence: None)
  Receive Date: 20090730
  Receipt Date: 20090330
  Transmission Date: 20100115
  Serious: Yes (Hospitalization)
  Sender: FDA-Public Use
  Company Number: US-BRISTOL-MYERS SQUIBB COMPANY-14567127

PATIENT
  Sex: Female

DRUGS (2)
  1. COUMADIN [Suspect]
  2. DOXYCYCLINE [Suspect]

REACTIONS (1)
  - INFLAMMATION [None]
